FAERS Safety Report 5392774-0 (Version None)
Quarter: 2007Q3

REPORT INFORMATION
  Report Type: 
  Country: None (occurrence: None)
  Receive Date: 20070718
  Receipt Date: 20070709
  Transmission Date: 20080115
  Serious: Yes (Other)
  Sender: FDA-Public Use
  Company Number: 2007US001613

PATIENT
  Sex: Male

DRUGS (6)
  1. PROGRAF [Suspect]
     Indication: DRUG USE FOR UNKNOWN INDICATION
     Dosage: 10 MG, UID/QD, ORAL
     Route: 048
     Dates: start: 20070610
  2. SULFAMETHOXAZOLE + TRIMETHOPRIM [Concomitant]
  3. OMEPRAZOLE [Concomitant]
  4. MYCOPHENOLATE MOFETIL [Concomitant]
  5. PREDNISOLONE [Concomitant]
  6. CLONIDINE [Concomitant]

REACTIONS (4)
  - POOR QUALITY SLEEP [None]
  - PYREXIA [None]
  - TACHYCARDIA [None]
  - TREMOR [None]
